FAERS Safety Report 9268755 (Version 1)
Quarter: 2013Q2

REPORT INFORMATION
  Report Type: Spontaneous
  Country: US (occurrence: US)
  Receive Date: 20130502
  Receipt Date: 20130502
  Transmission Date: 20140414
  Serious: No
  Sender: FDA-Public Use
  Company Number: US-ALEXION-A201300185

PATIENT
  Age: 12 Year
  Sex: Male
  Weight: 48.53 kg

DRUGS (16)
  1. SOLIRIS 300MG [Suspect]
     Indication: HAEMOLYTIC URAEMIC SYNDROME
     Dosage: 900 MG, UNK
     Route: 042
     Dates: start: 20110823, end: 20110823
  2. SOLIRIS 300MG [Suspect]
     Dosage: 900 MG, UNK
     Route: 042
     Dates: start: 20110830, end: 20110830
  3. SOLIRIS 300MG [Suspect]
     Dosage: 600 MG, QW
     Route: 042
     Dates: start: 20110901, end: 20110927
  4. SOLIRIS 300MG [Suspect]
     Dosage: 900 MG, Q2W
     Route: 042
     Dates: start: 20110927, end: 20111222
  5. SOLIRIS 300MG [Suspect]
     Dosage: 1200 MG, Q2W
     Route: 042
     Dates: start: 20111222
  6. TACROLIMUS [Concomitant]
     Indication: PROPHYLAXIS AGAINST TRANSPLANT REJECTION
     Dosage: 2.5 MG, BID
     Route: 048
     Dates: start: 201109
  7. AMLODIPINE [Concomitant]
     Indication: HYPERTENSION
     Dosage: 5 MG, BID DOSE ADJUSTED ACCORING TO BLOOD PRESSURE
     Route: 048
     Dates: start: 201108
  8. PENICILLIN VK [Concomitant]
     Indication: PROPHYLAXIS
     Dosage: 250 MG, BID
     Route: 048
     Dates: start: 20110823
  9. PENICILLIN VK [Concomitant]
     Indication: PROPHYLAXIS
  10. CELLCEPT [Concomitant]
     Indication: PROPHYLAXIS AGAINST TRANSPLANT REJECTION
     Dosage: 140 MG, BID
     Route: 048
     Dates: start: 201108
  11. ZYRTEC [Concomitant]
     Indication: HYPERSENSITIVITY
     Dosage: 10 ML, QD AT BEDTIME
     Route: 048
  12. PREDNISONE [Concomitant]
     Indication: PROPHYLAXIS AGAINST TRANSPLANT REJECTION
     Dosage: 5 MG, QD
     Route: 048
     Dates: start: 201108
  13. FLONASE [Concomitant]
     Indication: MULTIPLE ALLERGIES
     Dosage: 1 DF, BID 1 SPRAY EACH NOSTRIL
     Route: 045
  14. TRIMETHOPRIM SULFA [Concomitant]
     Indication: INFECTION PROPHYLAXIS
     Dosage: 1 TABLET 80/400 AT BEDTIME QD
     Route: 048
     Dates: start: 201108
  15. MULTIVITAMIN [Concomitant]
     Dosage: UNK, QD
  16. LABETALOL [Concomitant]
     Indication: HYPERTENSION
     Dosage: 200 MG, TID DOSE ADJUSTED ACCORDING TO BLOOD PRESSURE
     Dates: start: 201108

REACTIONS (2)
  - Blood urea increased [Recovering/Resolving]
  - Upper respiratory tract infection [Recovered/Resolved]
